FAERS Safety Report 6315883-8 (Version None)
Quarter: 2009Q3

REPORT INFORMATION
  Report Type: 
  Country: None (occurrence: None)
  Receive Date: 20090820
  Receipt Date: 20090813
  Transmission Date: 20100115
  Serious: Yes (Life-Threatening)
  Sender: FDA-Public Use
  Company Number: GB-ELI_LILLY_AND_COMPANY-GB200908002835

PATIENT
  Age: 71 Year
  Sex: Female
  Weight: 122 kg

DRUGS (30)
  1. BYETTA [Suspect]
     Indication: WEIGHT CONTROL
     Dosage: 10 UG, 2/D
     Route: 065
     Dates: start: 20090710, end: 20090717
  2. ALENDRONIC ACID [Concomitant]
     Dosage: 70 MG, WEEKLY (1/W)
     Route: 065
  3. AMLODIPINE [Concomitant]
     Dosage: 5 MG, DAILY (1/D)
     Route: 065
  4. CETOSTEARYL ALCOHOL [Concomitant]
     Dosage: 500 MG, UNKNOWN
     Route: 065
  5. ASPIRIN [Concomitant]
     Dosage: 75 MG, DAILY (1/D)
     Route: 065
  6. ATORVASTATIN [Concomitant]
     Dosage: 20 MG, DAILY (1/D)
     Route: 065
  7. CLOTRIMAZOLE [Concomitant]
     Indication: DISCOMFORT
     Dosage: 1 %, 3/D
     Route: 065
  8. CITALOPRAM HYDROBROMIDE [Concomitant]
     Dosage: 40 MG, DAILY (1/D)
     Route: 065
  9. DEXTROSE [Concomitant]
     Dosage: 40 %, AS NEEDED
     Route: 065
  10. DIFFLAM [Concomitant]
     Dosage: 0.15 %, UNKNOWN
     Route: 048
  11. FEXOFENADINE HYDROCHLORIDE [Concomitant]
     Dosage: 120 MG, DAILY (1/D)
     Route: 065
  12. FLUCONAZOLE [Concomitant]
     Dosage: 150 MG, UNKNOWN
     Route: 065
  13. FORMOTEROL FUMARATE [Concomitant]
     Dosage: 12 UG, 2/D
     Route: 055
  14. FUROSEMIDE [Concomitant]
     Dosage: 40 MG, DAILY (1/D)
     Route: 065
  15. GLIMEPIRIDE [Concomitant]
     Dosage: 1 MG, DAILY (1/D)
     Route: 065
  16. GLYCERYL TRINITRATE [Concomitant]
     Dosage: 400 UG, AS NEEDED
     Route: 065
  17. ISOPHANE INSULIN [Concomitant]
     Dosage: 100 IU, UNKNOWN
     Route: 065
  18. ISOSORBIDE MONONITRATE [Concomitant]
     Dosage: 60 MG, DAILY (1/D)
     Route: 065
  19. ISPAGHULA HUSK [Concomitant]
     Dosage: 3.5 G, DAILY (1/D)
     Route: 065
  20. LANSOPRAZOLE [Concomitant]
     Dosage: 30 MG, DAILY (1/D)
     Route: 065
  21. LOSARTAN POTASSIUM [Concomitant]
     Dosage: 100 MG, DAILY (1/D)
     Route: 065
  22. METFORMIN HYDROCHLORIDE [Concomitant]
     Dosage: 500 MG, DAILY (1/D)
     Route: 065
  23. MONTELUKAST SODIUM [Concomitant]
     Dosage: 10 MG, DAILY (1/D)
     Route: 065
  24. NOVORAPID [Concomitant]
     Dosage: 3 ML, AS NEEDED
     Route: 065
  25. PREDNISOLONE [Concomitant]
     Dosage: 10 MG, DAILY (1/D)
     Route: 065
  26. QVAR 40 [Concomitant]
     Dosage: 100 UG, 2/D
     Route: 055
  27. SALBUTAMOL [Concomitant]
     Dosage: 100 UG, UNKNOWN
     Route: 055
  28. SENNA [Concomitant]
     Dosage: 7.5 MG, 2/D
     Route: 065
  29. TIOTROPIUM BROMIDE [Concomitant]
     Dosage: 18 UG, DAILY (1/D)
     Route: 055
  30. CLOTRIMAZOLE [Concomitant]
     Dosage: 500 MG, UNKNOWN
     Route: 067

REACTIONS (4)
  - EATING DISORDER [None]
  - NAUSEA [None]
  - OFF LABEL USE [None]
  - VOMITING [None]
